FAERS Safety Report 20832910 (Version 3)
Quarter: 2022Q2

REPORT INFORMATION
  Report Type: Spontaneous
  Country: BR (occurrence: BR)
  Receive Date: 20220516
  Receipt Date: 20220613
  Transmission Date: 20220721
  Serious: Yes (Other)
  Sender: FDA-Public Use
  Company Number: BR-ELI_LILLY_AND_COMPANY-BR202205000480

PATIENT
  Age: 32 Year
  Sex: Female

DRUGS (2)
  1. TRULICITY [Suspect]
     Active Substance: DULAGLUTIDE
     Indication: Product used for unknown indication
     Dosage: 1.5 MG, WEEKLY (1/W)
     Route: 065
  2. TRULICITY [Suspect]
     Active Substance: DULAGLUTIDE
     Indication: Product used for unknown indication
     Dosage: 1.5 MG, WEEKLY (1/W)
     Route: 065

REACTIONS (11)
  - Injection site injury [Unknown]
  - Pyrexia [Unknown]
  - Injection site pain [Unknown]
  - Anxiety [Unknown]
  - Injection site swelling [Not Recovered/Not Resolved]
  - Abdominal pain [Not Recovered/Not Resolved]
  - Drug dose omission by device [Unknown]
  - Sleep disorder [Unknown]
  - Panic disorder [Unknown]
  - Depression [Unknown]
  - Vomiting [Unknown]

NARRATIVE: CASE EVENT DATE: 20220428
